FAERS Safety Report 6109521-7 (Version None)
Quarter: 2009Q1

REPORT INFORMATION
  Report Type: 
  Country: None (occurrence: None)
  Receive Date: 20090310
  Receipt Date: 20090303
  Transmission Date: 20090719
  Serious: Yes (Other)
  Sender: FDA-Public Use
  Company Number: CA-ELI_LILLY_AND_COMPANY-CA200903001028

PATIENT
  Sex: Male

DRUGS (9)
  1. HUMALOG MIX 75/25 [Suspect]
     Dosage: UNK, UNK
     Dates: start: 20081201, end: 20090101
  2. HUMALOG [Suspect]
     Indication: DIABETES MELLITUS
     Dosage: UNK, AS NEEDED
     Dates: start: 20090101
  3. HUMULIN N [Suspect]
     Indication: DIABETES MELLITUS
     Dosage: UNK, EACH EVENING
     Route: 058
     Dates: start: 20090101
  4. CRESTON [Concomitant]
     Dosage: 30 MG, EACH EVENING
  5. BICALUTAMIDE [Concomitant]
     Dosage: 50 MG, EACH EVENING
  6. NORVASC [Concomitant]
     Dosage: 10 MG, DAILY (1/D)
  7. PROPYL-THIOURACIL [Concomitant]
     Dosage: 100 MG, DAILY (1/D)
  8. METFORMIN HCL [Concomitant]
     Dosage: UNK, 2/D
  9. MICARDIS HCT [Concomitant]

REACTIONS (2)
  - CEREBROVASCULAR ACCIDENT [None]
  - PRURITUS [None]
